FAERS Safety Report 20722564 (Version 1)
Quarter: 2022Q2

REPORT INFORMATION
  Report Type: Spontaneous
  Country: DE (occurrence: DE)
  Receive Date: 20220418
  Receipt Date: 20220418
  Transmission Date: 20220720
  Serious: Yes (Hospitalization)
  Sender: FDA-Public Use
  Company Number: DE-ARISTO PHARMA-ITRA202203241

PATIENT
  Age: 29 Year
  Sex: Male

DRUGS (2)
  1. SPORANOX [Suspect]
     Active Substance: ITRACONAZOLE
     Indication: Tinea cruris
     Route: 065
  2. CICLOPIROX [Suspect]
     Active Substance: CICLOPIROX
     Indication: Tinea cruris
     Route: 061

REACTIONS (4)
  - Inflammation [Recovered/Resolved]
  - Malaise [Recovered/Resolved]
  - Pubic pain [Recovered/Resolved]
  - Pyrexia [Recovered/Resolved]
